FAERS Safety Report 16938008 (Version 1)
Quarter: 2019Q4

REPORT INFORMATION
  Report Type: Spontaneous
  Country: US (occurrence: US)
  Receive Date: 20191018
  Receipt Date: 20191018
  Transmission Date: 20200122
  Serious: No
  Sender: FDA-Public Use
  Company Number: US-TEVA-2019-US-1122842

PATIENT
  Sex: Female

DRUGS (2)
  1. ONDANSETRON [Concomitant]
     Active Substance: ONDANSETRON
     Route: 065
  2. CLONAZEPAM TABLET ACTAVIS [Suspect]
     Active Substance: CLONAZEPAM
     Route: 065

REACTIONS (1)
  - Nausea [Unknown]
